FAERS Safety Report 4831009-1 (Version None)
Quarter: 2005Q4

REPORT INFORMATION
  Report Type: 
  Country: None (occurrence: None)
  Receive Date: 20051115
  Receipt Date: 20051115
  Transmission Date: 20060501
  Serious: Yes (Hospitalization)
  Sender: FDA-Public Use
  Company Number: None

PATIENT
  Age: 77 Year
  Sex: Male
  Weight: 64.3 kg

DRUGS (7)
  1. DIGOXIN [Suspect]
     Indication: CARDIAC FAILURE CONGESTIVE
     Dosage: 0.125 MG QD CHRONIC
  2. TOPROL-XL [Concomitant]
  3. SPIRONOLACTONE [Concomitant]
  4. NIFEDIPINE [Concomitant]
  5. LISINOPRIL [Concomitant]
  6. LIPITOR [Concomitant]
  7. ASPIRIN [Concomitant]

REACTIONS (8)
  - ANOREXIA [None]
  - CHROMATURIA [None]
  - CONFUSIONAL STATE [None]
  - DEHYDRATION [None]
  - HALLUCINATION, VISUAL [None]
  - METABOLIC DISORDER [None]
  - SOMNOLENCE [None]
  - URINARY INCONTINENCE [None]
